FAERS Safety Report 18174139 (Version 1)
Quarter: 2020Q3

REPORT INFORMATION
  Report Type: Spontaneous
  Country: US (occurrence: US)
  Receive Date: 20200819
  Receipt Date: 20200819
  Transmission Date: 20201103
  Serious: No
  Sender: FDA-Public Use
  Company Number: None

PATIENT
  Age: 47 Year
  Sex: Male
  Weight: 81 kg

DRUGS (3)
  1. ALLEGRA [Concomitant]
     Active Substance: FEXOFENADINE HYDROCHLORIDE
  2. OPTIRAY 300 [Suspect]
     Active Substance: IOVERSOL
     Indication: IMAGING PROCEDURE
     Dosage: ?          OTHER FREQUENCY:ONCE W/CT SCAN;?
     Route: 042
     Dates: start: 20200819, end: 20200819
  3. SYNTHROID [Concomitant]
     Active Substance: LEVOTHYROXINE SODIUM

REACTIONS (4)
  - Vertigo [None]
  - Disorientation [None]
  - Sluggishness [None]
  - Feeling hot [None]

NARRATIVE: CASE EVENT DATE: 20200819
